FAERS Safety Report 9368887 (Version 1)
Quarter: 2013Q2

REPORT INFORMATION
  Report Type: Spontaneous
  Country: FR (occurrence: None)
  Receive Date: 20130621
  Receipt Date: 20130621
  Transmission Date: 20140414
  Serious: Yes (Other)
  Sender: FDA-Public Use
  Company Number: 2013AP005690

PATIENT
  Age: 7 Year
  Sex: Male

DRUGS (1)
  1. FERRIPROX [Suspect]
     Indication: ERYTHROPOIESIS ABNORMAL
     Dates: start: 20080927

REACTIONS (1)
  - Agranulocytosis [None]
